FAERS Safety Report 7627085-3 (Version None)
Quarter: 2011Q3

REPORT INFORMATION
  Report Type: 
  Country: None (occurrence: None)
  Receive Date: 20110721
  Receipt Date: 20110628
  Transmission Date: 20111222
  Serious: No
  Sender: FDA-Public Use
  Company Number: US-B.I. PHARMACEUTICALS,INC./RIDGEFIELD-2011-BP-16579BP

PATIENT
  Sex: Female

DRUGS (8)
  1. LISINOPRIL [Concomitant]
     Indication: ANGIOPATHY
     Dosage: 5 MG
     Route: 048
     Dates: start: 20080101
  2. NIASPAN [Concomitant]
     Indication: BLOOD CHOLESTEROL INCREASED
     Dosage: 500 MG
     Route: 048
  3. LIPITOR [Concomitant]
     Dosage: 20 MG
     Route: 048
  4. NORCO [Concomitant]
     Indication: BACK PAIN
     Route: 048
  5. SPIRIVA [Suspect]
     Route: 055
  6. METOPROLOL TARTRATE [Concomitant]
     Dosage: 12.5 MG
     Route: 048
  7. PLAVIX [Concomitant]
     Indication: ANTICOAGULANT THERAPY
     Dosage: 75 MG
     Route: 048
     Dates: start: 20080101
  8. ZANAFLEX [Concomitant]
     Indication: MUSCLE SPASMS
     Route: 048

REACTIONS (1)
  - DRUG INEFFECTIVE [None]
